FAERS Safety Report 9192404 (Version 1)
Quarter: 2013Q1

REPORT INFORMATION
  Report Type: Spontaneous
  Country: GR (occurrence: GR)
  Receive Date: 20130327
  Receipt Date: 20130327
  Transmission Date: 20140127
  Serious: Yes (Other)
  Sender: FDA-Public Use
  Company Number: GR-JNJFOC-20130313380

PATIENT
  Sex: Male

DRUGS (1)
  1. OXYBUTYNIN HYDROCHLORIDE, S- [Suspect]
     Indication: URINARY INCONTINENCE
     Dosage: RECEIVED A TOTAL OF 18 TABLETS
     Route: 048

REACTIONS (4)
  - Dyspnoea [Recovered/Resolved]
  - Discomfort [Recovered/Resolved]
  - Dry mouth [Recovered/Resolved]
  - Treatment noncompliance [Unknown]
